FAERS Safety Report 5254400-0 (Version None)
Quarter: 2007Q1

REPORT INFORMATION
  Report Type: 
  Country: None (occurrence: None)
  Receive Date: 20070302
  Receipt Date: 20070222
  Transmission Date: 20070707
  Serious: Yes (Congenital Anomaly)
  Sender: FDA-Public Use
  Company Number: FR-ABBOTT-07P-056-0360113-00

PATIENT
  Sex: Male

DRUGS (1)
  1. DEPAKENE [Suspect]
     Indication: DRUG EXPOSURE DURING PREGNANCY
     Route: 064

REACTIONS (22)
  - CARDIOMYOPATHY NEONATAL [None]
  - CEREBRAL VENTRICLE DILATATION [None]
  - CONGENITAL AORTIC ANOMALY [None]
  - CONGENITAL CENTRAL NERVOUS SYSTEM ANOMALY [None]
  - DISSEMINATED INTRAVASCULAR COAGULATION IN NEWBORN [None]
  - DUODENAL STENOSIS [None]
  - EYE MOVEMENT DISORDER [None]
  - FEEDING DISORDER NEONATAL [None]
  - GALLBLADDER ANOMALY CONGENITAL [None]
  - GASTRIC VOLVULUS [None]
  - HYPOCALCAEMIA [None]
  - HYPOREFLEXIA [None]
  - HYPOTONIA [None]
  - HYPOTONIA NEONATAL [None]
  - INGUINAL HERNIA [None]
  - NEONATAL RESPIRATORY DISTRESS SYNDROME [None]
  - PREMATURE BABY [None]
  - PSYCHOMOTOR SKILLS IMPAIRED [None]
  - SINGLE FUNCTIONAL KIDNEY [None]
  - TREMOR NEONATAL [None]
  - VENTRICULAR SEPTAL DEFECT [None]
  - VOMITING [None]
